FAERS Safety Report 7052303-2 (Version None)
Quarter: 2010Q4

REPORT INFORMATION
  Report Type: 
  Country: None (occurrence: None)
  Receive Date: 20101019
  Receipt Date: 20101007
  Transmission Date: 20110411
  Serious: Yes (Hospitalization, Other)
  Sender: FDA-Public Use
  Company Number: ES-ELI_LILLY_AND_COMPANY-ES201010001673

PATIENT
  Sex: Female

DRUGS (6)
  1. BYETTA [Suspect]
     Indication: DIABETES MELLITUS
     Dosage: 10 UG, DAILY (1/D)
     Route: 058
     Dates: start: 20090501
  2. VENTOLIN                                /SCH/ [Concomitant]
  3. SINGULAIR [Concomitant]
  4. DIACEPAN [Concomitant]
  5. INALADUO [Concomitant]
  6. FLUDETEN [Concomitant]

REACTIONS (1)
  - HEPATITIS C [None]
